FAERS Safety Report 17780845 (Version 1)
Quarter: 2020Q2

REPORT INFORMATION
  Report Type: Spontaneous
  Country: US (occurrence: US)
  Receive Date: 20200513
  Receipt Date: 20200513
  Transmission Date: 20200714
  Serious: Yes (Hospitalization)
  Sender: FDA-Public Use
  Company Number: None

PATIENT
  Age: 64 Year
  Sex: Male

DRUGS (1)
  1. APIXABAN (APIXABAN 5MG TAB) [Suspect]
     Active Substance: APIXABAN
     Indication: DEEP VEIN THROMBOSIS
     Route: 048

REACTIONS (7)
  - Rectal haemorrhage [None]
  - Haemorrhoids [None]
  - Pain in extremity [None]
  - Polyp [None]
  - Arthritis [None]
  - Gastric haemorrhage [None]
  - Flatulence [None]

NARRATIVE: CASE EVENT DATE: 20200305
